FAERS Safety Report 24303200 (Version 1)
Quarter: 2024Q3

REPORT INFORMATION
  Report Type: Spontaneous
  Country: US (occurrence: None)
  Receive Date: 20240907
  Receipt Date: 20240907
  Transmission Date: 20241016
  Serious: Yes (Other)
  Sender: Public
  Company Number: None

PATIENT
  Age: 48 Year
  Sex: Female
  Weight: 84 kg

DRUGS (1)
  1. DULOXETINE [Suspect]
     Active Substance: DULOXETINE
     Indication: Product used for unknown indication
     Dosage: 30 MG DAILY ORAL ?
     Route: 048
     Dates: start: 20240905, end: 20240906

REACTIONS (3)
  - Vision blurred [None]
  - Suicidal ideation [None]
  - Dizziness [None]

NARRATIVE: CASE EVENT DATE: 20240905
